FAERS Safety Report 16440303 (Version 1)
Quarter: 2019Q2

REPORT INFORMATION
  Report Type: Spontaneous
  Country: BR (occurrence: BR)
  Receive Date: 20190617
  Receipt Date: 20190617
  Transmission Date: 20190711
  Serious: Yes (Hospitalization)
  Sender: FDA-Public Use
  Company Number: BR-CELGENEUS-BRA-20190604209

PATIENT
  Age: 80 Year
  Sex: Male

DRUGS (2)
  1. VIDAZA [Suspect]
     Active Substance: AZACITIDINE
     Indication: MYELODYSPLASTIC SYNDROME
     Dosage: 125 MILLIGRAM
     Route: 058
     Dates: start: 20190506
  2. VIDAZA [Suspect]
     Active Substance: AZACITIDINE
     Dosage: 125 MILLIGRAM
     Route: 058
     Dates: start: 20190606

REACTIONS (1)
  - Dermatitis allergic [Unknown]

NARRATIVE: CASE EVENT DATE: 201905
